FAERS Safety Report 23758266 (Version 2)
Quarter: 2024Q2

REPORT INFORMATION
  Report Type: Spontaneous
  Country: GB (occurrence: GB)
  Receive Date: 20240418
  Receipt Date: 20240426
  Transmission Date: 20240716
  Serious: Yes (Hospitalization)
  Sender: FDA-Public Use
  Company Number: None

PATIENT
  Age: 87 Year
  Sex: Female

DRUGS (7)
  1. SERTRALINE [Suspect]
     Active Substance: SERTRALINE HYDROCHLORIDE
     Indication: Product used for unknown indication
     Dosage: OM
     Route: 065
     Dates: start: 20230920
  2. LANSOPRAZOLE [Concomitant]
     Active Substance: LANSOPRAZOLE
     Dosage: OM
  3. CLOPIDOGREL [Concomitant]
     Active Substance: CLOPIDOGREL BISULFATE
     Dosage: OM
  4. FELODIPINE [Concomitant]
     Active Substance: FELODIPINE
     Dosage: MR OM
  5. NITROFURANTOIN [Concomitant]
     Active Substance: NITROFURANTOIN
     Dosage: MR
     Dates: start: 20230925
  6. ATORVASTATIN [Suspect]
     Active Substance: ATORVASTATIN
     Indication: Product used for unknown indication
     Dosage: CHEWABLE
     Route: 065
  7. ATENOLOL [Concomitant]
     Active Substance: ATENOLOL
     Dosage: OM

REACTIONS (5)
  - Liver function test abnormal [Not Recovered/Not Resolved]
  - Diarrhoea [Unknown]
  - Lethargy [Unknown]
  - Hallucination [Unknown]
  - Confusional state [Unknown]

NARRATIVE: CASE EVENT DATE: 20230929
